FAERS Safety Report 5262964-6 (Version None)
Quarter: 2007Q1

REPORT INFORMATION
  Report Type: 
  Country: None (occurrence: None)
  Receive Date: 20070312
  Receipt Date: 20070227
  Transmission Date: 20070707
  Serious: Yes (Other)
  Sender: FDA-Public Use
  Company Number: US-SHR-US-2007-005302

PATIENT
  Age: 38 Year
  Sex: Female
  Weight: 137 kg

DRUGS (5)
  1. BETASERON [Suspect]
     Indication: RELAPSING-REMITTING MULTIPLE SCLEROSIS
     Dosage: 8 MIU, EVERY 2D
     Route: 058
     Dates: start: 20061215
  2. TRAZODONE HCL [Concomitant]
  3. LOMOTIL [Concomitant]
     Dosage: UNK, AS REQ'D
  4. ALBUTEROL [Concomitant]
     Dosage: UNK, AS REQ'D
  5. ADVIL [Concomitant]
     Indication: PREMEDICATION
     Dosage: UNK, AS REQ'D

REACTIONS (5)
  - BLOOD CHOLESTEROL INCREASED [None]
  - BLOOD GLUCOSE INCREASED [None]
  - DEPRESSION [None]
  - INFLUENZA LIKE ILLNESS [None]
  - PERICARDITIS [None]
